FAERS Safety Report 6838727-4 (Version None)
Quarter: 2010Q3

REPORT INFORMATION
  Report Type: 
  Country: None (occurrence: None)
  Receive Date: 20100713
  Receipt Date: 20070612
  Transmission Date: 20110219
  Serious: Yes (Other)
  Sender: FDA-Public Use
  Company Number: US-PFIZER INC-2007035881

PATIENT
  Sex: Female
  Weight: 91.6 kg

DRUGS (9)
  1. CHANTIX [Suspect]
     Indication: SMOKING CESSATION THERAPY
     Dates: start: 20070201
  2. LIPITOR [Concomitant]
  3. DOSTINEX [Concomitant]
  4. GLUCOPHAGE [Concomitant]
  5. ADVAIR DISKUS 100/50 [Concomitant]
  6. DIOVAN HCT [Concomitant]
  7. REGLAN [Concomitant]
  8. ACETYLSALICYLIC ACID [Concomitant]
  9. ATENOLOL [Concomitant]

REACTIONS (8)
  - COUGH [None]
  - DIZZINESS [None]
  - FEELING ABNORMAL [None]
  - LANGERHANS' CELL HISTIOCYTOSIS [None]
  - LUNG DISORDER [None]
  - NAUSEA [None]
  - NOCTURIA [None]
  - POLLAKIURIA [None]
